FAERS Safety Report 8908375 (Version 2)
Quarter: 2013Q2

REPORT INFORMATION
  Report Type: Spontaneous
  Country: US (occurrence: US)
  Receive Date: 20121114
  Receipt Date: 20130604
  Transmission Date: 20140414
  Serious: No
  Sender: FDA-Public Use
  Company Number: US-PFIZER INC-2012281185

PATIENT
  Age: 55 Year
  Sex: Female

DRUGS (2)
  1. BOSULIF [Suspect]
     Indication: CHRONIC MYELOID LEUKAEMIA
     Dosage: 500 MG, 1X/DAY
     Dates: start: 20121016
  2. BOSULIF [Suspect]
     Dosage: UNK

REACTIONS (5)
  - Dizziness [Unknown]
  - Diarrhoea [Recovering/Resolving]
  - Pain [Unknown]
  - Gait disturbance [Unknown]
  - Hypertension [Unknown]
